FAERS Safety Report 15973854 (Version 1)
Quarter: 2019Q1

REPORT INFORMATION
  Report Type: Spontaneous
  Country: US (occurrence: US)
  Receive Date: 20190217
  Receipt Date: 20190217
  Transmission Date: 20190418
  Serious: No
  Sender: FDA-Public Use
  Company Number: US-JNJFOC-20190201671

PATIENT
  Age: 19 Year
  Sex: Female

DRUGS (1)
  1. ORTHO TRI CYCLEN [Suspect]
     Active Substance: ETHINYL ESTRADIOL\NORGESTIMATE
     Indication: PRODUCT USED FOR UNKNOWN INDICATION
     Dosage: THE PATIENT BEGAN THE DRUG 4 YEARS AGO.
     Route: 048
     Dates: start: 2015

REACTIONS (1)
  - Product dose omission [Unknown]

NARRATIVE: CASE EVENT DATE: 20190127
